FAERS Safety Report 8590960-X (Version None)
Quarter: 2012Q3

REPORT INFORMATION
  Report Type: 
  Country: None (occurrence: None)
  Receive Date: 20120813
  Receipt Date: 20120803
  Transmission Date: 20120928
  Serious: Yes (Hospitalization)
  Sender: FDA-Public Use
  Company Number: PH-BAXTER-2012BAX008523

PATIENT
  Sex: Male

DRUGS (6)
  1. DIANEAL PD-2 W/ DEXTROSE 4.25% [Suspect]
     Route: 033
  2. FERROUS SULFATE TAB [Concomitant]
     Route: 065
  3. AMLODIPINE [Concomitant]
     Route: 065
  4. DIANEAL PD-2 W/ DEXTROSE 1.5% [Suspect]
     Route: 033
  5. CALCIUM CARBONATE [Concomitant]
     Route: 065
  6. FOLIC ACID [Concomitant]
     Route: 065

REACTIONS (2)
  - PRODUCT CONTAINER ISSUE [None]
  - PERITONITIS BACTERIAL [None]
